FAERS Safety Report 9850131 (Version 2)
Quarter: 2014Q3

REPORT INFORMATION
  Report Type: Spontaneous
  Country: US (occurrence: None)
  Receive Date: 20131226
  Receipt Date: 20140828
  Transmission Date: 20150326
  Serious: Yes (Life-Threatening, Other)
  Sender: FDA-Public Use
  Company Number: PHEH2013US003176

PATIENT
  Age: 46 Year
  Sex: Male
  Weight: 98.4 kg

DRUGS (4)
  1. OCTREOTIDE ACETATE. [Suspect]
     Active Substance: OCTREOTIDE ACETATE
     Indication: OESOPHAGEAL VARICES HAEMORRHAGE
     Dosage: 25 UG , PER HOUR CONTINUOUS INFUSION, INTRAVENOUS
     Route: 042
     Dates: start: 20121218, end: 20121221
  2. PROTONIX [Concomitant]
     Active Substance: PANTOPRAZOLE SODIUM
  3. DEXMEDETOMIDINE (DEXMEDETOMIDINE) [Concomitant]
  4. MVI (VITAMINS NOS) [Concomitant]

REACTIONS (6)
  - Hypokinesia [None]
  - Asthenia [None]
  - Pallor [None]
  - Hypoglycaemia [None]
  - Confusional state [None]
  - Mental impairment [None]

NARRATIVE: CASE EVENT DATE: 20121220
